FAERS Safety Report 6829172-6 (Version None)
Quarter: 2010Q3

REPORT INFORMATION
  Report Type: 
  Country: None (occurrence: None)
  Receive Date: 20100709
  Receipt Date: 20070306
  Transmission Date: 20110219
  Serious: No
  Sender: FDA-Public Use
  Company Number: US-PFIZER INC-2007019807

PATIENT
  Sex: Female
  Weight: 54.43 kg

DRUGS (3)
  1. CHANTIX [Suspect]
     Indication: SMOKING CESSATION THERAPY
     Dates: start: 20070101
  2. CALCIUM CARBONATE [Interacting]
  3. VITAMINS [Concomitant]

REACTIONS (3)
  - DRUG INTERACTION [None]
  - HOT FLUSH [None]
  - SKIN ODOUR ABNORMAL [None]
